FAERS Safety Report 11081835 (Version 1)
Quarter: 2015Q2

REPORT INFORMATION
  Report Type: Spontaneous
  Country: US (occurrence: None)
  Receive Date: 20150430
  Receipt Date: 20150430
  Transmission Date: 20150821
  Serious: Yes (Other)
  Sender: FDA-Public Use
  Company Number: None

PATIENT
  Age: 10 Year
  Sex: Male

DRUGS (1)
  1. AFINITOR [Suspect]
     Active Substance: EVEROLIMUS
     Indication: BRAIN NEOPLASM MALIGNANT
     Dosage: 10MG, ONCE DAILY, ORAL
     Route: 048
     Dates: start: 20120402

REACTIONS (1)
  - Infection [None]

NARRATIVE: CASE EVENT DATE: 20150429
